FAERS Safety Report 8623317 (Version 2)
Quarter: 2013Q2

REPORT INFORMATION
  Report Type: Report from Study
  Country: MX (occurrence: MX)
  Receive Date: 20120620
  Receipt Date: 20130429
  Transmission Date: 20140414
  Serious: Yes (Death, Other)
  Sender: FDA-Public Use
  Company Number: PHHY2012MX052178

PATIENT
  Age: 74 Year
  Sex: Female

DRUGS (1)
  1. ACLASTA [Suspect]
     Indication: OSTEOPOROSIS
     Dosage: 5 MG/ 100 ML, PER YEAR
     Route: 042
     Dates: start: 20111125

REACTIONS (3)
  - Death [Fatal]
  - Fall [Unknown]
  - Limb injury [Unknown]
